FAERS Safety Report 4969306-1 (Version None)
Quarter: 2006Q2

REPORT INFORMATION
  Report Type: 
  Country: None (occurrence: None)
  Receive Date: 20060411
  Receipt Date: 20060320
  Transmission Date: 20061013
  Serious: Yes (Other)
  Sender: FDA-Public Use
  Company Number: DE-ROCHE-440887

PATIENT
  Age: 66 Year
  Sex: Female
  Weight: 77 kg

DRUGS (2)
  1. PEG-INTERFERON A-2A (RO 25-8310) [Suspect]
     Route: 058
     Dates: start: 20051122, end: 20060316
  2. RIBAVIRIN [Suspect]
     Route: 048
     Dates: start: 20051122, end: 20060316

REACTIONS (4)
  - ANAEMIA [None]
  - NERVOUS SYSTEM DISORDER [None]
  - PYREXIA [None]
  - RASH [None]
